FAERS Safety Report 15004036 (Version 1)
Quarter: 2018Q2

REPORT INFORMATION
  Report Type: Spontaneous
  Country: US (occurrence: US)
  Receive Date: 20180524
  Receipt Date: 20180524
  Transmission Date: 20180711
  Serious: Yes (Other)
  Sender: FDA-Public Use
  Company Number: None

PATIENT
  Age: 50 Year
  Sex: Female
  Weight: 65.25 kg

DRUGS (9)
  1. DECONGESTANTS [Concomitant]
  2. QVAR REDIHALER [Suspect]
     Active Substance: BECLOMETHASONE DIPROPIONATE
     Indication: BRONCHIAL HYPERREACTIVITY
     Dosage: ?          QUANTITY:2 PUFF(S);?
     Route: 055
     Dates: start: 20180503, end: 20180522
  3. QVAR [Concomitant]
     Active Substance: BECLOMETHASONE DIPROPIONATE
  4. IBUPROFEN. [Concomitant]
     Active Substance: IBUPROFEN
  5. MODAFINIL. [Concomitant]
     Active Substance: MODAFINIL
  6. ALPRAZOLAM. [Concomitant]
     Active Substance: ALPRAZOLAM
  7. FISH OIL [Concomitant]
     Active Substance: FISH OIL
  8. SINGULAIR [Concomitant]
     Active Substance: MONTELUKAST SODIUM
  9. VITAMIN D [Concomitant]
     Active Substance: CHOLECALCIFEROL

REACTIONS (7)
  - Drug intolerance [None]
  - Pulmonary pain [None]
  - Stomatitis [None]
  - Oral pain [None]
  - Oral fungal infection [None]
  - Dysphonia [None]
  - Pharyngitis [None]

NARRATIVE: CASE EVENT DATE: 20180514
